FAERS Safety Report 21372895 (Version 2)
Quarter: 2022Q3

REPORT INFORMATION
  Report Type: Spontaneous
  Country: US (occurrence: US)
  Receive Date: 20220924
  Receipt Date: 20220927
  Transmission Date: 20221027
  Serious: No
  Sender: FDA-Public Use
  Company Number: US-SANOFI-01288499

PATIENT
  Sex: Female

DRUGS (1)
  1. DUPIXENT [Suspect]
     Active Substance: DUPILUMAB
     Indication: Dermatitis atopic
     Dosage: 300 MG, QOW
     Route: 065

REACTIONS (5)
  - Injection site discolouration [Unknown]
  - Injection site exfoliation [Unknown]
  - Rash macular [Unknown]
  - Skin discolouration [Unknown]
  - Skin exfoliation [Unknown]
